FAERS Safety Report 11693648 (Version 5)
Quarter: 2016Q1

REPORT INFORMATION
  Report Type: Report from Study
  Country: IT (occurrence: IT)
  Receive Date: 20151103
  Receipt Date: 20160303
  Transmission Date: 20160525
  Serious: Yes (Hospitalization)
  Sender: FDA-Public Use
  Company Number: IT-GILEAD-2015-0179565

PATIENT
  Age: 62 Year
  Sex: Male
  Weight: 85 kg

DRUGS (24)
  1. IDROCORTISONE [Concomitant]
     Dosage: UNK
     Route: 042
     Dates: start: 20150422
  2. VERSATIS [Concomitant]
     Active Substance: LIDOCAINE
     Dosage: UNK
     Route: 061
     Dates: start: 20150731
  3. RITUXIMAB [Suspect]
     Active Substance: RITUXIMAB
     Dosage: 730 MG, Q1WK
     Route: 042
     Dates: start: 20150429, end: 20150429
  4. ACETYLSALICYLIC ACID [Concomitant]
     Active Substance: ASPIRIN
     Dosage: UNK
     Route: 048
     Dates: start: 20150513
  5. IDELALISIB [Suspect]
     Active Substance: IDELALISIB
     Dosage: 150 MG, BID
     Route: 048
     Dates: start: 20150715, end: 20151026
  6. RITUXIMAB [Suspect]
     Active Substance: RITUXIMAB
     Dosage: 730 MG, Q1WK
     Route: 042
     Dates: start: 20150513, end: 20150513
  7. RITUXIMAB [Suspect]
     Active Substance: RITUXIMAB
     Dosage: 730 MG, Q1WK
     Route: 042
     Dates: start: 20150710, end: 20150710
  8. LEVOSULPRIDE [Concomitant]
     Active Substance: LEVOSULPIRIDE
     Dosage: UNK
  9. GABAPENTIN. [Concomitant]
     Active Substance: GABAPENTIN
     Dosage: UNK
     Route: 048
     Dates: start: 20150731, end: 20150930
  10. LANSOPRAZOLO [Concomitant]
     Active Substance: LANSOPRAZOLE
     Dosage: UNK
     Route: 048
     Dates: start: 20150119
  11. MOMETASON [Concomitant]
     Dosage: UNK
     Route: 061
     Dates: start: 20150914, end: 20150929
  12. NEURABEN [Concomitant]
     Active Substance: CYANOCOBALAMIN\PYRIDOXINE\THIAMINE
     Dosage: UNK
     Route: 048
     Dates: start: 20150731
  13. TAMSULOSINA [Concomitant]
     Active Substance: TAMSULOSIN HYDROCHLORIDE
     Dosage: UNK
     Route: 048
  14. RITUXIMAB [Suspect]
     Active Substance: RITUXIMAB
     Dosage: 730 MG, Q1WK
     Route: 042
     Dates: start: 20150506, end: 20150506
  15. RITUXIMAB [Suspect]
     Active Substance: RITUXIMAB
     Dosage: 730 MG, Q1WK
     Route: 042
     Dates: start: 20150520, end: 20150520
  16. RITUXIMAB [Suspect]
     Active Substance: RITUXIMAB
     Dosage: 730 MG, Q1WK
     Route: 042
     Dates: start: 20150603, end: 20150603
  17. VALACICLOVIR [Concomitant]
     Active Substance: VALACYCLOVIR HYDROCHLORIDE
     Dosage: UNK
     Route: 048
     Dates: start: 20150626
  18. RAMIPRIL. [Concomitant]
     Active Substance: RAMIPRIL
     Dosage: UNK
     Route: 048
     Dates: end: 20151027
  19. RITUXIMAB [Suspect]
     Active Substance: RITUXIMAB
     Dosage: 730 MG, Q1WK
     Route: 042
     Dates: start: 20150527, end: 20150527
  20. RITUXIMAB [Suspect]
     Active Substance: RITUXIMAB
     Dosage: UNK
     Route: 042
  21. IDELALISIB [Suspect]
     Active Substance: IDELALISIB
     Indication: CHRONIC LYMPHOCYTIC LEUKAEMIA
     Dosage: 150 MG, BID
     Route: 048
     Dates: start: 20150422, end: 20150607
  22. RITUXIMAB [Suspect]
     Active Substance: RITUXIMAB
     Indication: CHRONIC LYMPHOCYTIC LEUKAEMIA
     Dosage: 730 MG, Q1WK
     Route: 042
     Dates: start: 20150422, end: 20150422
  23. ALLOPURINOLO [Concomitant]
     Active Substance: ALLOPURINOL
     Dosage: UNK
     Route: 048
     Dates: start: 20150813
  24. CLORFENAMINA MALEATO [Concomitant]
     Dosage: UNK
     Route: 042
     Dates: start: 20150422

REACTIONS (3)
  - Hiccups [Recovered/Resolved]
  - Arthralgia [Recovered/Resolved]
  - Pyrexia [Recovered/Resolved]

NARRATIVE: CASE EVENT DATE: 20151018
